FAERS Safety Report 11067951 (Version 1)
Quarter: 2015Q2

REPORT INFORMATION
  Report Type: Spontaneous
  Country: US (occurrence: None)
  Receive Date: 20150424
  Receipt Date: 20150424
  Transmission Date: 20150821
  Serious: Yes (Disabling, Other)
  Sender: FDA-Public Use
  Company Number: None

PATIENT
  Age: 67 Year
  Sex: Female
  Weight: 145 kg

DRUGS (7)
  1. LIDOCAINE HCL [Suspect]
     Active Substance: LIDOCAINE HYDROCHLORIDE
     Indication: PELVIC PAIN
     Dosage: 1 % , INJECTION
     Dates: start: 20140320, end: 20140320
  2. VITAMIN D [Concomitant]
     Active Substance: CHOLECALCIFEROL
  3. ESTRADIOL 50 MG [Concomitant]
  4. ESTRONE, 30 MCG IN FAHIBASE [Concomitant]
  5. METROGEL 75% [Concomitant]
  6. TERAZOL 3 [Concomitant]
     Active Substance: TERCONAZOLE
  7. NOR QD [Concomitant]
     Active Substance: NORETHINDRONE

REACTIONS (9)
  - Sleep disorder due to general medical condition, insomnia type [None]
  - No therapeutic response [None]
  - Pain [None]
  - Bladder pain [None]
  - Pelvic inflammatory disease [None]
  - Drug administration error [None]
  - Post procedural complication [None]
  - Vaginal infection [None]
  - Product contamination [None]

NARRATIVE: CASE EVENT DATE: 20150320
